FAERS Safety Report 4921005-8 (Version None)
Quarter: 2006Q1

REPORT INFORMATION
  Report Type: 
  Country: None (occurrence: None)
  Receive Date: 20060223
  Receipt Date: 20041210
  Transmission Date: 20060701
  Serious: Yes (Hospitalization, Other)
  Sender: FDA-Public Use
  Company Number: US-MERCK-0412USA01370

PATIENT
  Age: 67 Year
  Sex: Male

DRUGS (2)
  1. VIOXX [Suspect]
     Indication: ARTHRITIS
     Route: 048
     Dates: start: 20001001, end: 20010101
  2. VIOXX [Suspect]
     Route: 048
     Dates: start: 20020118

REACTIONS (4)
  - BRONCHITIS [None]
  - MYOCARDIAL INFARCTION [None]
  - PAIN IN EXTREMITY [None]
  - SYNCOPE [None]
